FAERS Safety Report 4995509-6 (Version None)
Quarter: 2006Q2

REPORT INFORMATION
  Report Type: 
  Country: None (occurrence: None)
  Receive Date: 20060504
  Receipt Date: 20060424
  Transmission Date: 20061013
  Serious: Yes (Other)
  Sender: FDA-Public Use
  Company Number: HQWYE968025APR06

PATIENT
  Age: 23 Year
  Sex: Female
  Weight: 93.07 kg

DRUGS (5)
  1. EFFEXOR XR [Suspect]
     Indication: MIGRAINE
     Dosage: SEE IMAGE
     Route: 048
     Dates: end: 20020101
  2. EFFEXOR XR [Suspect]
     Indication: MIGRAINE
     Dosage: SEE IMAGE
     Route: 048
     Dates: start: 20020101, end: 20050501
  3. EFFEXOR XR [Suspect]
     Indication: MIGRAINE
     Dosage: SEE IMAGE
     Route: 048
     Dates: start: 20050501, end: 20050801
  4. EFFEXOR XR [Suspect]
     Indication: MIGRAINE
     Dosage: SEE IMAGE
     Route: 048
     Dates: start: 20010101
  5. ELAVIL [Concomitant]

REACTIONS (5)
  - DIPLOPIA [None]
  - DRUG DEPENDENCE [None]
  - DRUG WITHDRAWAL SYNDROME [None]
  - HEART RATE INCREASED [None]
  - WEIGHT INCREASED [None]
